FAERS Safety Report 20992345 (Version 1)
Quarter: 2022Q2

REPORT INFORMATION
  Report Type: Spontaneous
  Country: CN (occurrence: None)
  Receive Date: 20220622
  Receipt Date: 20220622
  Transmission Date: 20220721
  Serious: Yes (Other)
  Sender: FDA-Public Use
  Company Number: CN-ROCHE-3117639

PATIENT
  Age: 61 Year
  Sex: Female

DRUGS (37)
  1. TRASTUZUMAB [Suspect]
     Active Substance: TRASTUZUMAB
     Indication: Breast cancer
     Route: 041
     Dates: start: 20180321
  2. TRASTUZUMAB [Suspect]
     Active Substance: TRASTUZUMAB
     Route: 041
     Dates: start: 20180411
  3. TRASTUZUMAB [Suspect]
     Active Substance: TRASTUZUMAB
     Dosage: TRASTUZUMAB + PACLITAXEL LIPOSOME + CARBOPLATIN
     Route: 041
     Dates: start: 20180503
  4. TRASTUZUMAB [Suspect]
     Active Substance: TRASTUZUMAB
     Dosage: TRASTUZUMAB + DOCETAXEL + CARBOPLATIN
     Route: 041
     Dates: start: 20180816
  5. TRASTUZUMAB [Suspect]
     Active Substance: TRASTUZUMAB
     Route: 041
     Dates: start: 20180927
  6. TRASTUZUMAB [Suspect]
     Active Substance: TRASTUZUMAB
     Dosage: TRASTUZUMAB + PYRROTINIB + CAPECITABINE
     Route: 041
     Dates: start: 20191221
  7. TRASTUZUMAB [Suspect]
     Active Substance: TRASTUZUMAB
     Dosage: HP
     Route: 041
     Dates: start: 202111, end: 20220318
  8. TRASTUZUMAB [Suspect]
     Active Substance: TRASTUZUMAB
     Dosage: TRASTUZUMAB + ERIBULIN + TUCATINIB
     Route: 041
     Dates: start: 20220603
  9. PERJETA [Suspect]
     Active Substance: PERTUZUMAB
     Indication: Breast cancer
     Dosage: HP
     Route: 065
     Dates: start: 202111
  10. KADCYLA [Suspect]
     Active Substance: ADO-TRASTUZUMAB EMTANSINE
     Indication: Breast cancer
     Dosage: TRASTUZUMAB EMTANSINE + PYRROTINIB + APATINIB
     Route: 065
     Dates: start: 20201109
  11. DOCETAXEL [Concomitant]
     Active Substance: DOCETAXEL
     Indication: Breast cancer
     Dosage: DOCETAXEL + CISPLATIN
     Dates: start: 20170516
  12. DOCETAXEL [Concomitant]
     Active Substance: DOCETAXEL
     Dosage: TAC
     Dates: start: 20170609
  13. DOCETAXEL [Concomitant]
     Active Substance: DOCETAXEL
     Dosage: TRASTUZUMAB + DOCETAXEL + CARBOPLATIN
     Dates: start: 20180816
  14. CISPLATIN [Concomitant]
     Active Substance: CISPLATIN
     Indication: Breast cancer
     Dosage: DOCETAXEL + CISPLATIN, 70MG DAY1, 60MG DAY2
     Dates: start: 20170516
  15. PIRARUBICIN [Concomitant]
     Active Substance: PIRARUBICIN
     Indication: Breast cancer
     Dosage: TAC,40MG DAY1, 30MG DAY2
     Dates: start: 20170811
  16. CYCLOPHOSPHAMIDE [Concomitant]
     Active Substance: CYCLOPHOSPHAMIDE
     Indication: Breast cancer
     Dosage: TAC
     Dates: start: 20170811
  17. PACLITAXEL [Concomitant]
     Active Substance: PACLITAXEL
     Indication: Breast cancer
     Dates: start: 20180503
  18. CARBOPLATIN [Concomitant]
     Active Substance: CARBOPLATIN
     Indication: Breast cancer
     Dates: start: 20180503
  19. CARBOPLATIN [Concomitant]
     Active Substance: CARBOPLATIN
     Dates: start: 20180816
  20. LAPATINIB [Concomitant]
     Active Substance: LAPATINIB
     Indication: Breast cancer
     Dosage: LAPATINIB + CAPECITABINE
     Dates: start: 20190114
  21. LAPATINIB [Concomitant]
     Active Substance: LAPATINIB
     Dosage: LAPATINIB + GEMCITABINE
     Dates: start: 20190315
  22. LAPATINIB [Concomitant]
     Active Substance: LAPATINIB
     Dosage: LAPATINIB + VINORELBINE
     Dates: start: 20190529
  23. LAPATINIB [Concomitant]
     Active Substance: LAPATINIB
     Dosage: LAPATINIB + VINORELBINE + CAPECITABINE
     Dates: start: 20190731
  24. LAPATINIB [Concomitant]
     Active Substance: LAPATINIB
     Dosage: LAPATINIB + NAB-PACLITAXEL + CAPECITABINE
     Dates: start: 20191124
  25. CAPECITABINE [Concomitant]
     Active Substance: CAPECITABINE
     Indication: Breast cancer
     Dosage: LAPATINIB + CAPECITABINE
     Dates: start: 20190114
  26. CAPECITABINE [Concomitant]
     Active Substance: CAPECITABINE
     Dosage: LAPATINIB + VINORELBINE + CAPECITABINE
     Dates: start: 20190731
  27. CAPECITABINE [Concomitant]
     Active Substance: CAPECITABINE
     Dosage: LAPATINIB + NAB-PACLITAXEL + CAPECITABINE
     Dates: start: 20191124
  28. CAPECITABINE [Concomitant]
     Active Substance: CAPECITABINE
     Dosage: TRASTUZUMAB + PYRROTINIB + CAPECITABINE
     Dates: start: 20191221
  29. GEMCITABINE [Concomitant]
     Active Substance: GEMCITABINE
     Indication: Breast cancer
     Dosage: LAPATINIB + GEMCITABINE
     Dates: start: 20190315
  30. VINORELBINE [Concomitant]
     Active Substance: VINORELBINE TARTRATE
     Indication: Breast cancer
     Dosage: LAPATINIB + VINORELBINE
     Dates: start: 20190529
  31. VINORELBINE [Concomitant]
     Active Substance: VINORELBINE TARTRATE
     Dosage: LAPATINIB + VINORELBINE + CAPECITABINE
     Dates: start: 20190731
  32. VINORELBINE [Concomitant]
     Active Substance: VINORELBINE TARTRATE
     Route: 048
     Dates: start: 202111, end: 20220318
  33. PACLITAXEL [Concomitant]
     Active Substance: PACLITAXEL
     Indication: Breast cancer
     Dosage: LAPATINIB + NAB-PACLITAXEL + CAPECITABINE
     Dates: start: 20191124
  34. ETOPOSIDE [Concomitant]
     Active Substance: ETOPOSIDE
     Indication: Breast cancer
  35. APATINIB [Concomitant]
     Active Substance: APATINIB
     Indication: Breast cancer
     Dosage: TRASTUZUMAB EMTANSINE + PYRROTINIB + APATINIB
     Dates: start: 20201109
  36. ERIBULIN [Concomitant]
     Active Substance: ERIBULIN
     Indication: Breast cancer
     Dosage: TRASTUZUMAB + ERIBULIN + TUCATINIB
     Dates: start: 20220603
  37. TUCATINIB [Concomitant]
     Active Substance: TUCATINIB
     Indication: Breast cancer
     Dosage: TRASTUZUMAB + ERIBULIN + TUCATINIB
     Dates: start: 20220603

REACTIONS (5)
  - Myelosuppression [Unknown]
  - Pyrexia [Recovering/Resolving]
  - Gastrointestinal disorder [Unknown]
  - Rash [Recovering/Resolving]
  - Neuropathy peripheral [Recovering/Resolving]
